FAERS Safety Report 16973859 (Version 2)
Quarter: 2021Q1

REPORT INFORMATION
  Report Type: Spontaneous
  Country: DE (occurrence: DE)
  Receive Date: 20191030
  Receipt Date: 20210319
  Transmission Date: 20210419
  Serious: Yes (Death, Other)
  Sender: FDA-Public Use
  Company Number: DE-SUN PHARMACEUTICAL INDUSTRIES LTD-2019RR-225596

PATIENT
  Age: 4 Week
  Sex: Male
  Weight: 3.5 kg

DRUGS (1)
  1. CITALOPRAM [Suspect]
     Active Substance: CITALOPRAM HYDROBROMIDE
     Indication: MATERNAL DRUGS AFFECTING FOETUS
     Dosage: 20 MILLIGRAM, UNK
     Route: 064

REACTIONS (5)
  - Foetal exposure during pregnancy [Fatal]
  - Neonatal respiratory distress syndrome [Fatal]
  - Heart disease congenital [Fatal]
  - Congenital hepatomegaly [Fatal]
  - Hypertrophic cardiomyopathy [Fatal]

NARRATIVE: CASE EVENT DATE: 20190915
